FAERS Safety Report 9288084 (Version 1)
Quarter: 2013Q2

REPORT INFORMATION
  Report Type: Spontaneous
  Country: US (occurrence: None)
  Receive Date: 20130513
  Receipt Date: 20130513
  Transmission Date: 20140414
  Serious: No
  Sender: FDA-Public Use
  Company Number: None

PATIENT
  Age: 34 Year
  Sex: Male

DRUGS (1)
  1. CIALIS [Suspect]
     Indication: ERECTILE DYSFUNCTION
     Dosage: 1 TAB
     Route: 048
     Dates: start: 20130503, end: 20130503

REACTIONS (4)
  - Feeling abnormal [None]
  - Nausea [None]
  - Vomiting [None]
  - Back pain [None]
